FAERS Safety Report 9214327 (Version 2)
Quarter: 2013Q2

REPORT INFORMATION
  Report Type: Report from Study
  Country: US (occurrence: US)
  Receive Date: 20130405
  Receipt Date: 20130426
  Transmission Date: 20140414
  Serious: Yes (Hospitalization)
  Sender: FDA-Public Use
  Company Number: US-PFIZER INC-2013093532

PATIENT
  Age: 82 Year
  Sex: Male
  Weight: 91.26 kg

DRUGS (14)
  1. AXITINIB [Suspect]
     Indication: TONGUE NEOPLASM MALIGNANT STAGE UNSPECIFIED
     Dosage: 5 MG, TWICE DAILY
     Route: 048
     Dates: start: 20121205, end: 20130227
  2. AXITINIB [Suspect]
     Dosage: 3 MG, 2X/DAY
     Route: 048
     Dates: start: 20130313, end: 20130327
  3. FOSAMAX [Concomitant]
     Route: 048
  4. ASCORBIC ACID ER [Concomitant]
     Dosage: 500 MG TABLET
  5. ASPIRIN [Concomitant]
     Dosage: 81 MG TABLET
  6. CALCIUM CARBONATE-VITAMIN D3 [Concomitant]
     Dosage: 600 MG (1500 MG)-400 UNIT CAPSULE
  7. CITALOPRAM [Concomitant]
     Dosage: 20 MG TABLET
     Dates: start: 20130116
  8. VITAMIN D [Concomitant]
     Route: 048
  9. GLIPIZIDE [Concomitant]
     Dosage: 5 MG TABLET
  10. LORAZEPAM [Concomitant]
     Dosage: 1 MG TABLET
  11. PRAVASTATIN [Concomitant]
     Dosage: 20 MG TABLET
  12. PREDNISONE [Concomitant]
     Dosage: 10 MG TABLET
  13. RANEXA [Concomitant]
  14. METOPROLOL [Concomitant]

REACTIONS (2)
  - Gastritis [Unknown]
  - Myocardial ischaemia [Unknown]
